FAERS Safety Report 5223139-X (Version None)
Quarter: 2007Q1

REPORT INFORMATION
  Report Type: 
  Country: None (occurrence: None)
  Receive Date: 20070123
  Receipt Date: 20070117
  Transmission Date: 20070707
  Serious: Yes (Death)
  Sender: FDA-Public Use
  Company Number: 2007S1000021

PATIENT
  Age: 11 Day
  Sex: Male

DRUGS (8)
  1. NITRIC OXIDE [Suspect]
     Indication: LUNG DISORDER
     Dosage: 5 PPM; CONT; INH
     Route: 055
     Dates: start: 20070105, end: 20070116
  2. NITRIC OXIDE [Suspect]
     Indication: PROPHYLAXIS
     Dosage: 5 PPM; CONT; INH
     Route: 055
     Dates: start: 20070105, end: 20070116
  3. VANCOMYCIN HCL [Concomitant]
  4. GENTAMICIN [Concomitant]
  5. CEFTAZIDIME [Concomitant]
  6. DOXAPRAM (DOXAPRAM) [Concomitant]
  7. INSULIN [Concomitant]
  8. CAFFEINE (CAFFEINE) [Concomitant]

REACTIONS (3)
  - CARDIAC ARREST NEONATAL [None]
  - NEONATAL DISORDER [None]
  - PULMONARY HAEMORRHAGE [None]
